FAERS Safety Report 9357743 (Version 2)
Quarter: 2013Q2

REPORT INFORMATION
  Report Type: Other
  Country: DE (occurrence: JP)
  Receive Date: 20130620
  Receipt Date: 20130626
  Transmission Date: 20140414
  Serious: No
  Sender: FDA-Public Use
  Company Number: JP-FRI-1000046009

PATIENT
  Sex: Female

DRUGS (9)
  1. MEMANTINE [Suspect]
     Indication: DEMENTIA ALZHEIMER^S TYPE
     Dosage: 5 MG
     Route: 048
     Dates: start: 20120921, end: 20120924
  2. ARICEPT [Suspect]
     Indication: PSYCHIATRIC SYMPTOM
     Dosage: 3 MG
     Route: 048
     Dates: start: 20120827, end: 20120909
  3. ARICEPT [Suspect]
     Indication: DEMENTIA ALZHEIMER^S TYPE
     Dosage: 5 MG
     Route: 048
     Dates: start: 20120910, end: 20120917
  4. ARICEPT [Suspect]
     Indication: PSYCHIATRIC SYMPTOM
     Dosage: 10 MG
     Route: 048
     Dates: start: 20120918
  5. ARICEPT [Suspect]
     Indication: DEMENTIA ALZHEIMER^S TYPE
     Dosage: 5 MG
  6. MICARDIS [Concomitant]
     Indication: HYPERTENSION
     Dosage: 40 MG
     Route: 048
  7. ADALAT CR [Concomitant]
     Indication: HYPERTENSION
     Dosage: 40 MG
     Route: 048
  8. MEVALOTIN [Concomitant]
     Indication: DYSLIPIDAEMIA
     Dosage: 5 MG
     Route: 048
  9. JANUVIA [Concomitant]
     Indication: DIABETES MELLITUS
     Route: 048

REACTIONS (1)
  - Electrocardiogram PR prolongation [Recovering/Resolving]
